FAERS Safety Report 4975682-6 (Version None)
Quarter: 2006Q2

REPORT INFORMATION
  Report Type: 
  Country: None (occurrence: None)
  Receive Date: 20060411
  Receipt Date: 20060330
  Transmission Date: 20061013
  Serious: No
  Sender: FDA-Public Use
  Company Number: 06H-163-0306953-00

PATIENT
  Age: 57 Year
  Sex: Female

DRUGS (23)
  1. BUMETANIDE INJECTION (BUMEX INJECTION) (BUMETANIDE) (BUMETANIDE) [Suspect]
     Indication: OEDEMA PERIPHERAL
     Dosage: INTRAVENOUS
     Route: 042
  2. FUROSEMIDE INJECTION (FUROSEMIDE (FUROSEMIDE) [Suspect]
     Indication: DIURETIC THERAPY
     Dosage: 400 MG, TWICE DAILY, INTRAVENOUS
     Route: 042
  3. TORSEMIDE [Suspect]
     Indication: DIURETIC THERAPY
     Dosage: INTRAVENOUS
     Route: 042
  4. DOBUTAMINE (DOBUTAMINE) [Concomitant]
  5. FERROUS SULFATE TAB [Concomitant]
  6. ASCORBIC ACID [Concomitant]
  7. MAGNESIUM GLUCONATE (MAGNESIUM GLUCONATE) [Concomitant]
  8. PANTOPRAZOLE SODIUM [Concomitant]
  9. DOCUSATE (DOCUSATE) [Concomitant]
  10. DIGOXIN [Concomitant]
  11. SPIRINOLACTONE (DIURETICS) [Concomitant]
  12. ERYTHROPOIETIN ALFA (ERYTHROPOIETIN) [Concomitant]
  13. VALSARTAN [Concomitant]
  14. CONJUGATED ESTROGEN [Concomitant]
  15. ISOSORBIDE DINITRATE [Concomitant]
  16. HEPARIN [Concomitant]
  17. METOLAZONE [Concomitant]
  18. FUROSEMIDE [Concomitant]
  19. LEVOTHYROXINE SODIUM [Concomitant]
  20. ETHACRYNIC ACID (ETACRYNIC ACID) [Concomitant]
  21. LANSOPRAZOLE [Concomitant]
  22. VALSARTAN [Concomitant]
  23. WARFARIN SODIUM [Concomitant]

REACTIONS (10)
  - CARDIAC FAILURE [None]
  - CONDITION AGGRAVATED [None]
  - DRUG HYPERSENSITIVITY [None]
  - FLUID OVERLOAD [None]
  - INCORRECT DOSE ADMINISTERED [None]
  - MYALGIA [None]
  - OEDEMA PERIPHERAL [None]
  - PANCREATIC PSEUDOCYST [None]
  - PANCREATITIS CHRONIC [None]
  - PULMONARY OEDEMA [None]
